FAERS Safety Report 17132696 (Version 9)
Quarter: 2020Q1

REPORT INFORMATION
  Report Type: Spontaneous
  Country: US (occurrence: US)
  Receive Date: 20191210
  Receipt Date: 20200206
  Transmission Date: 20200409
  Serious: Yes (Other)
  Sender: FDA-Public Use
  Company Number: US-UNITED THERAPEUTICS-UNT-2019-018711

PATIENT
  Age: 69 Year
  Sex: Female
  Weight: 53.52 kg

DRUGS (5)
  1. ADCIRCA [Suspect]
     Active Substance: TADALAFIL
     Indication: PULMONARY ARTERIAL HYPERTENSION
     Dosage: UNK
     Route: 065
  2. ORENITRAM [Suspect]
     Active Substance: TREPROSTINIL
     Indication: PULMONARY ARTERIAL HYPERTENSION
     Dosage: 1.5 MG, Q8H
     Route: 048
     Dates: start: 20190410
  3. ORENITRAM [Suspect]
     Active Substance: TREPROSTINIL
     Indication: PULMONARY ARTERIAL HYPERTENSION
     Dosage: UNK
     Route: 048
  4. LETAIRIS [Suspect]
     Active Substance: AMBRISENTAN
     Indication: PULMONARY ARTERIAL HYPERTENSION
     Dosage: 10 MG, QD
     Route: 048
     Dates: start: 20161013
  5. ORENITRAM [Suspect]
     Active Substance: TREPROSTINIL
     Indication: PULMONARY ARTERIAL HYPERTENSION
     Dosage: UNK
     Route: 048

REACTIONS (18)
  - Myalgia [Unknown]
  - Gait disturbance [Unknown]
  - Bone pain [Unknown]
  - Insomnia [Unknown]
  - Pain in jaw [Unknown]
  - Arthritis [Unknown]
  - Muscle enzyme increased [Unknown]
  - Retinal vascular occlusion [Unknown]
  - Decreased appetite [Unknown]
  - Paraesthesia [Unknown]
  - Pain in extremity [Unknown]
  - Dyspepsia [Unknown]
  - Pain [Unknown]
  - Nausea [Unknown]
  - Flatulence [Unknown]
  - Headache [Unknown]
  - Angiopathy [Unknown]
  - Constipation [Unknown]

NARRATIVE: CASE EVENT DATE: 2019
